FAERS Safety Report 13595425 (Version 2)
Quarter: 2017Q2

REPORT INFORMATION
  Report Type: Report from Study
  Country: US (occurrence: US)
  Receive Date: 20170531
  Receipt Date: 20170608
  Transmission Date: 20170830
  Serious: Yes (Hospitalization, Other)
  Sender: FDA-Public Use
  Company Number: US-GILEAD-2017-0271068

PATIENT
  Age: 51 Year
  Sex: Female

DRUGS (8)
  1. AMBRISENTAN [Suspect]
     Active Substance: AMBRISENTAN
     Indication: SUBSTANCE USE
  2. ASPIRIN                            /00002701/ [Concomitant]
     Active Substance: ASPIRIN
  3. AMBRISENTAN [Suspect]
     Active Substance: AMBRISENTAN
     Indication: PULMONARY HYPERTENSION
     Dosage: 10 MG, QD
     Route: 065
     Dates: start: 20120211
  4. NICODERM CQ [Concomitant]
     Active Substance: NICOTINE
  5. FUROSEMIDE. [Concomitant]
     Active Substance: FUROSEMIDE
  6. METOLAZONE. [Concomitant]
     Active Substance: METOLAZONE
  7. SPIRONOLACTONE. [Concomitant]
     Active Substance: SPIRONOLACTONE
  8. POTASSIUM [Concomitant]
     Active Substance: POTASSIUM

REACTIONS (5)
  - Renal failure [Unknown]
  - Dyspnoea [Recovered/Resolved]
  - Peripheral swelling [Unknown]
  - Sepsis [Recovered/Resolved]
  - Substance use [Unknown]

NARRATIVE: CASE EVENT DATE: 20170520
